FAERS Safety Report 13206001 (Version 3)
Quarter: 2017Q1

REPORT INFORMATION
  Report Type: Report from Study
  Country: DE (occurrence: DE)
  Receive Date: 20170209
  Receipt Date: 20170330
  Transmission Date: 20170428
  Serious: Yes (Death, Other)
  Sender: FDA-Public Use
  Company Number: DE-CELGENEUS-DEU-2017015499

PATIENT
  Age: 54 Year
  Sex: Female

DRUGS (3)
  1. KEVATRIL [Concomitant]
     Active Substance: GRANISETRON HYDROCHLORIDE
     Indication: PREMEDICATION
     Route: 065
     Dates: start: 20160927, end: 20161230
  2. CALCIGEN [Concomitant]
     Indication: PROPHYLAXIS
     Dosage: 600 MG/400 IE
     Route: 065
     Dates: start: 20160906, end: 20170119
  3. ABRAXANE [Suspect]
     Active Substance: PACLITAXEL
     Indication: BREAST CANCER
     Route: 041
     Dates: start: 20160927, end: 20161129

REACTIONS (2)
  - Anaemia [Not Recovered/Not Resolved]
  - Hepatic failure [Fatal]

NARRATIVE: CASE EVENT DATE: 20160927
